FAERS Safety Report 14823800 (Version 1)
Quarter: 2018Q2

REPORT INFORMATION
  Report Type: Spontaneous
  Country: US (occurrence: US)
  Receive Date: 20180428
  Receipt Date: 20180428
  Transmission Date: 20180711
  Serious: No
  Sender: FDA-Public Use
  Company Number: US-TEVA-2018-US-862040

PATIENT
  Age: 91 Year
  Sex: Female

DRUGS (1)
  1. ALPRAZOLAM. [Suspect]
     Active Substance: ALPRAZOLAM
     Dosage: FORM STRENGTH: 0.25 (UNIT NOT REPORTED)
     Dates: start: 20180206

REACTIONS (5)
  - Memory impairment [Unknown]
  - Dyspepsia [Unknown]
  - Somnolence [Unknown]
  - Fatigue [Unknown]
  - Drug intolerance [Unknown]
